FAERS Safety Report 18019300 (Version 6)
Quarter: 2020Q4

REPORT INFORMATION
  Report Type: Spontaneous
  Country: US (occurrence: US)
  Receive Date: 20200714
  Receipt Date: 20201124
  Transmission Date: 20210113
  Serious: Yes (Hospitalization)
  Sender: FDA-Public Use
  Company Number: US-GLAXOSMITHKLINE-US2020AMR128434

PATIENT
  Sex: Female

DRUGS (3)
  1. INTEGRA [Concomitant]
     Active Substance: DIETARY SUPPLEMENT
     Indication: PRODUCT USED FOR UNKNOWN INDICATION
     Dosage: UNK
  2. ZEJULA [Suspect]
     Active Substance: NIRAPARIB
     Indication: OVARIAN CANCER
     Dosage: 300 MG, QD
     Dates: start: 20200629
  3. ZEJULA [Suspect]
     Active Substance: NIRAPARIB
     Dosage: 200 MG, QD
     Dates: start: 20200629

REACTIONS (12)
  - Hospitalisation [Unknown]
  - Haemoglobin decreased [Unknown]
  - Platelet count decreased [Unknown]
  - Heart rate increased [Unknown]
  - Oral mucosal eruption [Unknown]
  - Insomnia [Unknown]
  - Hypertension [Unknown]
  - Full blood count decreased [Not Recovered/Not Resolved]
  - Contusion [Unknown]
  - Palpitations [Unknown]
  - Tachyphrenia [Unknown]
  - Constipation [Unknown]
